FAERS Safety Report 18142923 (Version 1)
Quarter: 2020Q3

REPORT INFORMATION
  Report Type: Other
  Country: US (occurrence: US)
  Receive Date: 20200813
  Receipt Date: 20200813
  Transmission Date: 20201103
  Serious: Yes (Other)
  Sender: FDA-Public Use
  Company Number: US-ROCHE-2656162

PATIENT
  Age: 57 Year
  Sex: Male
  Weight: 74.91 kg

DRUGS (5)
  1. BACLOFEN. [Concomitant]
     Active Substance: BACLOFEN
     Route: 048
  2. PRENATAL VITAMINS [Concomitant]
     Active Substance: VITAMINS
     Route: 048
     Dates: start: 202003
  3. OCREVUS [Suspect]
     Active Substance: OCRELIZUMAB
     Indication: PRIMARY PROGRESSIVE MULTIPLE SCLEROSIS
     Dosage: INFUSION, 2 HALF DOSES
     Route: 042
     Dates: start: 20200609
  4. BENADRYL [Concomitant]
     Active Substance: DIPHENHYDRAMINE HYDROCHLORIDE
     Route: 048
     Dates: start: 2010
  5. CITALOPRAM [Concomitant]
     Active Substance: CITALOPRAM HYDROBROMIDE
     Indication: DEPRESSION
     Route: 048
     Dates: start: 2010

REACTIONS (4)
  - Pain [Recovering/Resolving]
  - Oral candidiasis [Recovering/Resolving]
  - Skin plaque [Recovering/Resolving]
  - Stomatitis [Recovering/Resolving]

NARRATIVE: CASE EVENT DATE: 202007
